FAERS Safety Report 7501484-2 (Version None)
Quarter: 2011Q2

REPORT INFORMATION
  Report Type: 
  Country: None (occurrence: None)
  Receive Date: 20110524
  Receipt Date: 20091008
  Transmission Date: 20111010
  Serious: Yes (Other)
  Sender: FDA-Public Use
  Company Number: US-BAYER-200935535NA

PATIENT
  Age: 72 Year
  Sex: Male
  Weight: 100 kg

DRUGS (26)
  1. TRASYLOL [Suspect]
     Indication: MITRAL VALVE REPAIR
     Dosage: 200CC PRIME
     Route: 042
     Dates: start: 20041005, end: 20041005
  2. LANTUS [Concomitant]
     Dosage: 5 U, UNK
     Route: 042
     Dates: start: 20041005, end: 20041005
  3. TRASYLOL [Suspect]
  4. SUFENTANIL CITRATE [Concomitant]
     Dosage: 175 MG, UNK
     Route: 042
     Dates: start: 20041005, end: 20041005
  5. LOVENOX [Concomitant]
     Dosage: UNK
     Route: 048
     Dates: start: 20040930
  6. AMIODARONE HCL [Concomitant]
     Dosage: UNK
     Dates: start: 20041001
  7. TRASYLOL [Suspect]
     Indication: CORONARY ARTERY BYPASS
     Dosage: 400CC/HOUR
     Route: 042
     Dates: start: 20041005, end: 20041005
  8. METOPROLOL [Concomitant]
     Dosage: UNK
     Route: 042
     Dates: start: 20041001
  9. VERSED [Concomitant]
     Dosage: 4 MG, UNK
     Route: 042
  10. DOBUTAMINE HYDROCHLORIDE [Concomitant]
     Dosage: UNK
     Route: 042
     Dates: start: 20041001
  11. MIDAZOLAM HCL [Concomitant]
     Dosage: UNK
     Route: 042
     Dates: start: 20041001
  12. ISOPTIN [Concomitant]
     Dosage: 0.5 MG, UNK
     Route: 042
     Dates: start: 20041005, end: 20041005
  13. SOLU-MEDROL [Concomitant]
     Dosage: 3 G, UNK
     Route: 042
  14. TRASYLOL [Suspect]
     Dosage: 1 ML
     Route: 042
     Dates: start: 20041005, end: 20041005
  15. LASIX [Concomitant]
     Dosage: UNK
     Route: 048
     Dates: start: 20040930
  16. TRASYLOL [Suspect]
     Indication: AORTIC VALVE REPLACEMENT
     Dosage: 50ML/HOUR
     Route: 042
     Dates: start: 20041005, end: 20041005
  17. ETOMIDATE [Concomitant]
     Dosage: 18 MG, UNK
     Route: 042
     Dates: start: 20041005, end: 20041005
  18. EPINEPHRINE [Concomitant]
     Dosage: UNK
     Route: 042
     Dates: start: 20041005, end: 20041005
  19. CORLOPAM [Concomitant]
     Dosage: 4CC/HOUR
     Route: 042
  20. CARDIZEM [Concomitant]
     Dosage: 0.25 MG, UNK
  21. LASIX [Concomitant]
     Dosage: 80 MG, UNK
     Route: 042
     Dates: start: 20041005, end: 20041005
  22. HEPARIN [Concomitant]
     Dosage: UNK
     Route: 042
     Dates: start: 20041001
  23. DIGOXIN [Concomitant]
     Dosage: UNK
     Dates: start: 20041001
  24. SCOPOLAMINE [Concomitant]
     Dosage: 0.4 UNK, UNK
     Route: 042
     Dates: start: 20041005, end: 20041005
  25. LEVOPHED [Concomitant]
     Dosage: UNK
     Route: 042
     Dates: start: 20041005
  26. CONTRAST MEDIA [Concomitant]
     Indication: CATHETERISATION CARDIAC
     Dosage: UNK
     Dates: start: 20041001

REACTIONS (10)
  - RENAL IMPAIRMENT [None]
  - INJURY [None]
  - RENAL INJURY [None]
  - PAIN [None]
  - STRESS [None]
  - ANXIETY [None]
  - RENAL FAILURE [None]
  - EMOTIONAL DISTRESS [None]
  - UNEVALUABLE EVENT [None]
  - FEAR [None]
